FAERS Safety Report 25922195 (Version 3)
Quarter: 2025Q4

REPORT INFORMATION
  Report Type: Report from Study
  Country: EU (occurrence: EU)
  Receive Date: 20251015
  Receipt Date: 20251021
  Transmission Date: 20260117
  Serious: Yes (Death, Hospitalization, Other)
  Sender: ABBVIE
  Company Number: EU-ABBVIE-6423479

PATIENT
  Age: 71 Year
  Sex: Male

DRUGS (4)
  1. CARBIDOPA [Suspect]
     Active Substance: CARBIDOPA
     Indication: Parkinson^s disease
     Dosage: 20 MG + 5 MG, MOR:14CC; MAINT:7.5CC/H; EX:1CC
     Route: 050
     Dates: end: 20251013
  2. CARBIDOPA [Suspect]
     Active Substance: CARBIDOPA
     Dosage: 20 MG + 5 MG, MOR:7CC; MAINT:5.6CC/H; EX:1CC
     Route: 050
     Dates: start: 20220304
  3. SINEMET CR [Concomitant]
     Active Substance: CARBIDOPA\LEVODOPA
     Indication: Product used for unknown indication
     Dosage: 1 TABLET, AT BEDTIME, AFTER DUODOPA SUBCUTANEOUS
     Route: 048
  4. EDARBI [Concomitant]
     Active Substance: AZILSARTAN KAMEDOXOMIL
     Indication: Product used for unknown indication
     Dosage: EDARBI 40, 1 TABLET, IN THE MORNING, BEFORE DUODOPA SUBCUTANEOUS
     Route: 048

REACTIONS (10)
  - Pneumonia [Fatal]
  - Fall [Not Recovered/Not Resolved]
  - Balance disorder [Not Recovered/Not Resolved]
  - Loss of personal independence in daily activities [Not Recovered/Not Resolved]
  - Appetite disorder [Not Recovered/Not Resolved]
  - Musculoskeletal stiffness [Not Recovered/Not Resolved]
  - Dysphonia [Not Recovered/Not Resolved]
  - Bradykinesia [Not Recovered/Not Resolved]
  - Respiratory failure [Fatal]
  - Terminal state [Fatal]

NARRATIVE: CASE EVENT DATE: 20250801
